FAERS Safety Report 6293589-1 (Version None)
Quarter: 2009Q3

REPORT INFORMATION
  Report Type: 
  Country: None (occurrence: None)
  Receive Date: 20090729
  Receipt Date: 20090715
  Transmission Date: 20100115
  Serious: Yes (Other)
  Sender: FDA-Public Use
  Company Number: A-JP2009-25483

PATIENT
  Age: 61 Year
  Sex: Female

DRUGS (5)
  1. TRACLEER [Suspect]
     Indication: PULMONARY ARTERIAL HYPERTENSION
     Dosage: 62.5 MG, BID, ORAL
     Route: 048
     Dates: start: 20090410, end: 20090415
  2. FUROSEMIDE [Concomitant]
  3. HYDROCORTONE [Concomitant]
  4. PREDNISOLONE [Concomitant]
  5. RABEPRAZOLE SODUM (RABEPRAZOLE SODIUM) [Concomitant]

REACTIONS (1)
  - PANCYTOPENIA [None]
